FAERS Safety Report 5076509-7 (Version None)
Quarter: 2006Q3

REPORT INFORMATION
  Report Type: 
  Country: None (occurrence: None)
  Receive Date: 20060810
  Receipt Date: 20060726
  Transmission Date: 20061208
  Serious: Yes (Hospitalization, Other)
  Sender: FDA-Public Use
  Company Number: US-AMGEN-US187668

PATIENT
  Age: 75 Year
  Sex: Female

DRUGS (1)
  1. ENBREL [Suspect]
     Indication: PSORIASIS
     Dates: start: 20041101, end: 20050601

REACTIONS (5)
  - CELLULITIS GANGRENOUS [None]
  - CONDITION AGGRAVATED [None]
  - PSORIASIS [None]
  - SOFT TISSUE NECROSIS [None]
  - STREPTOCOCCAL SEPSIS [None]
